FAERS Safety Report 10580042 (Version 1)
Quarter: 2014Q4

REPORT INFORMATION
  Report Type: Spontaneous
  Country: DE (occurrence: DE)
  Receive Date: 20141112
  Receipt Date: 20141112
  Transmission Date: 20150529
  Serious: Yes (Congenital Anomaly)
  Sender: FDA-Public Use
  Company Number: DE-TEVA-520081GER

PATIENT
  Age: 0 Year
  Sex: Male

DRUGS (2)
  1. MIRTAZAPIN [Suspect]
     Active Substance: MIRTAZAPINE
     Indication: DEPRESSION
     Dosage: 30 MILLIGRAM DAILY;
     Route: 064
     Dates: start: 20120731, end: 20130506
  2. L-THYROXIN [Concomitant]
     Active Substance: LEVOTHYROXINE SODIUM
     Indication: HYPOTHYROIDISM
     Dosage: 75 MICROGRAM DAILY;
     Route: 064
     Dates: start: 20120731, end: 20130506

REACTIONS (4)
  - Haemangioma [Unknown]
  - Foetal exposure during pregnancy [Unknown]
  - Rash generalised [Recovered/Resolved]
  - Congenital skin dimples [Unknown]
